FAERS Safety Report 13162630 (Version 1)
Quarter: 2017Q1

REPORT INFORMATION
  Report Type: Spontaneous
  Country: FR (occurrence: FR)
  Receive Date: 20170130
  Receipt Date: 20170130
  Transmission Date: 20170428
  Serious: Yes (Hospitalization)
  Sender: FDA-Public Use
  Company Number: FR-PFIZER INC-2017030520

PATIENT
  Age: 60 Year
  Sex: Male

DRUGS (10)
  1. ADENURIC [Concomitant]
     Active Substance: FEBUXOSTAT
     Dosage: 80 MG, 1X/DAY
     Route: 048
  2. CHAMPIX [Suspect]
     Active Substance: VARENICLINE TARTRATE
     Dosage: 1 MG, 3 TO 4 TIMES DAILY
     Route: 048
     Dates: start: 201611, end: 20161203
  3. ATORVASTATIN [Concomitant]
     Active Substance: ATORVASTATIN
     Dosage: 2 DF OF 5 MG, 1X/DAY IN THE MORNING
     Route: 048
  4. GLIMEPIRIDE. [Concomitant]
     Active Substance: GLIMEPIRIDE
     Dosage: 2 MG, 1X/DAY
     Route: 048
  5. ULTIBRO BREEZHALER [Concomitant]
     Active Substance: GLYCOPYRRONIUM\INDACATEROL
     Dosage: 1 DF OF 85 UG/43 UG, 1X/DAY
     Route: 055
  6. SERESTA [Concomitant]
     Active Substance: OXAZEPAM
     Dosage: 10MG TABLETS, 4DF ONCE DAILY
     Route: 048
  7. IMOVANE [Concomitant]
     Active Substance: ZOPICLONE
     Dosage: 2 DF OF 3.75 MG, 1X/DAY AT BEDTIME
     Route: 048
  8. LOXAPAC /00401801/ [Concomitant]
     Active Substance: LOXAPINE SUCCINATE
     Dosage: 50 GTT, 3X/DAY IN THE MORNING, AT MIDDAY AND IN THE EVENING AS NEEDED
     Route: 048
  9. CHAMPIX [Suspect]
     Active Substance: VARENICLINE TARTRATE
     Dosage: 1 MG, 4X/DAY
     Route: 048
     Dates: start: 201611
  10. PANTOPRAZOLE [Concomitant]
     Active Substance: PANTOPRAZOLE SODIUM
     Dosage: 40 MG, 1X/DAY
     Route: 048

REACTIONS (1)
  - Brief psychotic disorder with marked stressors [Recovered/Resolved]

NARRATIVE: CASE EVENT DATE: 20161201
